FAERS Safety Report 5699662-0 (Version None)
Quarter: 2008Q2

REPORT INFORMATION
  Report Type: 
  Country: None (occurrence: None)
  Receive Date: 20080410
  Receipt Date: 20080404
  Transmission Date: 20081010
  Serious: Yes (Other)
  Sender: FDA-Public Use
  Company Number: PHEH2006US06483

PATIENT
  Age: 73 Year
  Sex: Female
  Weight: 68.027 kg

DRUGS (9)
  1. PREMARIN [Suspect]
     Indication: MENOPAUSAL SYMPTOMS
     Dates: start: 19860101, end: 19900101
  2. PREMARIN [Suspect]
     Dates: start: 19930701, end: 19930801
  3. PREMARIN [Suspect]
     Route: 048
     Dates: start: 19940101, end: 20000401
  4. PROVERA [Suspect]
     Indication: MENOPAUSAL SYMPTOMS
     Dates: start: 19860101, end: 20000401
  5. PREMPRO [Suspect]
     Indication: MENOPAUSAL SYMPTOMS
     Dates: start: 20000401, end: 20010601
  6. ESTRACE [Suspect]
     Indication: MENOPAUSAL SYMPTOMS
     Dates: start: 19950101, end: 19950101
  7. ESTRADERM [Suspect]
     Indication: MENOPAUSAL SYMPTOMS
     Route: 062
     Dates: start: 19900101, end: 19930701
  8. ESTRADERM [Suspect]
     Route: 062
     Dates: start: 19930801, end: 19940101
  9. MICROZIDE [Concomitant]
     Indication: HYPERTENSION

REACTIONS (35)
  - APPENDICECTOMY [None]
  - ARTHRALGIA [None]
  - ARTHRITIS [None]
  - ASTHMA [None]
  - BIOPSY [None]
  - BLOOD CHOLESTEROL INCREASED [None]
  - BONE PAIN [None]
  - BREAST CALCIFICATIONS [None]
  - BREAST CANCER [None]
  - BREAST CANCER IN SITU [None]
  - BREAST HYPERPLASIA [None]
  - CHEMOTHERAPY [None]
  - CHOLECYSTECTOMY [None]
  - DYSPNOEA [None]
  - ECZEMA [None]
  - EMOTIONAL DISORDER [None]
  - ENDOMETRIAL HYPERTROPHY [None]
  - FATIGUE [None]
  - FIBROADENOMA OF BREAST [None]
  - FIBROCYSTIC BREAST DISEASE [None]
  - GLAUCOMA [None]
  - HYPERTENSION [None]
  - LUNG NEOPLASM [None]
  - MASTECTOMY [None]
  - OESTROGEN RECEPTOR ASSAY POSITIVE [None]
  - OSTEOARTHRITIS [None]
  - OSTEOPOROSIS [None]
  - PAIN [None]
  - PROGESTERONE RECEPTOR ASSAY POSITIVE [None]
  - PRURITUS [None]
  - RASH [None]
  - SWELLING [None]
  - THYROID DISORDER [None]
  - UTERINE LEIOMYOMA [None]
  - WEIGHT INCREASED [None]
